FAERS Safety Report 7455932-7 (Version None)
Quarter: 2011Q2

REPORT INFORMATION
  Report Type: 
  Country: None (occurrence: None)
  Receive Date: 20110503
  Receipt Date: 20110408
  Transmission Date: 20111010
  Serious: No
  Sender: FDA-Public Use
  Company Number: US-JNJFOC-20110204215

PATIENT
  Sex: Female
  Weight: 81.65 kg

DRUGS (4)
  1. LOCAL ANAESTHETIC [Suspect]
     Indication: ILL-DEFINED DISORDER
     Route: 065
  2. INVEGA SUSTENNA [Suspect]
     Indication: SCHIZOPHRENIA
     Route: 030
  3. INVEGA SUSTENNA [Suspect]
     Route: 030
  4. ANTI HYPERTENSIVE MEDICATION [Concomitant]
     Indication: HYPERTENSION
     Route: 048

REACTIONS (6)
  - URINARY TRACT INFECTION [None]
  - BLOOD PRESSURE INCREASED [None]
  - CONFUSIONAL STATE [None]
  - DEMENTIA [None]
  - RED BLOOD CELL SEDIMENTATION RATE INCREASED [None]
  - DRUG DOSE OMISSION [None]
